FAERS Safety Report 8976446 (Version 1)
Quarter: 2012Q4

REPORT INFORMATION
  Report Type: 
  Country: IT (occurrence: IT)
  Receive Date: 20121220
  Receipt Date: 20121220
  Transmission Date: 20130627
  Serious: Yes (Other)
  Sender: FDA-Public Use
  Company Number: IT-BRISTOL-MYERS SQUIBB COMPANY-17203464

PATIENT
  Age: 42 Year
  Sex: Female

DRUGS (4)
  1. COUMADIN TABS 5 MG [Suspect]
     Route: 048
     Dates: start: 20121205, end: 20121205
  2. TAVOR [Suspect]
     Dosage: Tavor 1 mg tablets
     Route: 048
     Dates: start: 20121205, end: 20121205
  3. XANAX [Suspect]
     Dosage: Xanax 1 mg tablets
     Route: 048
     Dates: start: 20121205, end: 20121205
  4. SIVASTIN [Suspect]
     Route: 048
     Dates: start: 20121205, end: 20121205

REACTIONS (1)
  - Toxicity to various agents [Unknown]
